FAERS Safety Report 13691999 (Version 3)
Quarter: 2017Q3

REPORT INFORMATION
  Report Type: Report from Study
  Country: US (occurrence: US)
  Receive Date: 20170626
  Receipt Date: 20170814
  Transmission Date: 20171127
  Serious: Yes (Other)
  Sender: FDA-Public Use
  Company Number: US-AMGEN-USASL2017093853

PATIENT
  Age: 54 Year
  Sex: Female

DRUGS (2)
  1. REPATHA [Suspect]
     Active Substance: EVOLOCUMAB
     Indication: HYPERCHOLESTEROLAEMIA
  2. REPATHA [Suspect]
     Active Substance: EVOLOCUMAB
     Indication: HYPERLIPIDAEMIA
     Dosage: 140 MG, Q2WK
     Route: 065

REACTIONS (11)
  - Disturbance in attention [Unknown]
  - Communication disorder [Unknown]
  - Hypertension [Unknown]
  - Wrong technique in product usage process [Unknown]
  - Oropharyngeal pain [Unknown]
  - Injection site haemorrhage [Unknown]
  - Contusion [Not Recovered/Not Resolved]
  - Injection site pain [Unknown]
  - Feeling abnormal [Unknown]
  - Learning disorder [Unknown]
  - Injection site bruising [Recovering/Resolving]

NARRATIVE: CASE EVENT DATE: 20170617
